FAERS Safety Report 6052756-2 (Version None)
Quarter: 2009Q1

REPORT INFORMATION
  Report Type: 
  Country: None (occurrence: None)
  Receive Date: 20090127
  Receipt Date: 20081230
  Transmission Date: 20090719
  Serious: No
  Sender: FDA-Public Use
  Company Number: US-BAYER-200814994BCC

PATIENT
  Age: 61 Year
  Sex: Female
  Weight: 54 kg

DRUGS (3)
  1. ALEVE GELTABS [Suspect]
     Indication: BURSITIS
     Dates: start: 20080101
  2. MOBIC [Suspect]
     Indication: BURSITIS
     Dates: start: 20080101
  3. DARVOCET-N 100 [Concomitant]
     Dates: start: 20081201

REACTIONS (1)
  - DYSPEPSIA [None]
